FAERS Safety Report 7597565-8 (Version None)
Quarter: 2011Q3

REPORT INFORMATION
  Report Type: 
  Country: None (occurrence: None)
  Receive Date: 20110708
  Receipt Date: 20110628
  Transmission Date: 20111222
  Serious: Yes (Other)
  Sender: FDA-Public Use
  Company Number: JP-ROCHE-754349

PATIENT
  Sex: Female

DRUGS (20)
  1. ACTEMRA [Suspect]
     Route: 041
     Dates: start: 20080903, end: 20080903
  2. METHOTREXATE [Suspect]
     Indication: RHEUMATOID ARTHRITIS
     Route: 048
     Dates: start: 20080509
  3. ACTEMRA [Suspect]
     Route: 041
     Dates: start: 20090408, end: 20090408
  4. RISEDRONATE SODIUM [Concomitant]
     Route: 048
  5. LENDORMIN [Concomitant]
     Route: 048
  6. ACTEMRA [Suspect]
     Indication: RHEUMATOID ARTHRITIS
     Route: 041
     Dates: start: 20080804, end: 20080804
  7. ACTEMRA [Suspect]
     Route: 041
     Dates: start: 20081110, end: 20081110
  8. ACTEMRA [Suspect]
     Route: 041
     Dates: start: 20090306, end: 20090306
  9. PREDNISOLONE [Suspect]
     Indication: RHEUMATOID ARTHRITIS
     Route: 048
     Dates: start: 20080410
  10. SOLON [Concomitant]
     Dosage: FORM: MINUTE GRAIN
     Route: 048
  11. ETODOLAC [Concomitant]
     Route: 048
  12. ACTEMRA [Suspect]
     Route: 041
     Dates: start: 20081208, end: 20081208
  13. ACTEMRA [Suspect]
     Route: 041
     Dates: start: 20090708, end: 20090708
  14. ACTEMRA [Suspect]
     Route: 041
     Dates: start: 20090514, end: 20090514
  15. ACINON [Concomitant]
     Route: 048
  16. ACTEMRA [Suspect]
     Route: 041
     Dates: start: 20081008, end: 20081008
  17. ACTEMRA [Suspect]
     Route: 041
     Dates: start: 20090108, end: 20090108
  18. ACTEMRA [Suspect]
     Route: 041
     Dates: start: 20090206, end: 20090206
  19. TICLOPIDINE HYDROCHLORIDE [Concomitant]
     Dosage: FORM: PERORAL AGENT.
     Route: 048
  20. FOLIC ACID [Concomitant]
     Route: 048

REACTIONS (1)
  - KNEE ARTHROPLASTY [None]
